FAERS Safety Report 7503824-7 (Version None)
Quarter: 2011Q2

REPORT INFORMATION
  Report Type: 
  Country: None (occurrence: None)
  Receive Date: 20110525
  Receipt Date: 20110518
  Transmission Date: 20111010
  Serious: Yes (Death)
  Sender: FDA-Public Use
  Company Number: US-GENZYME-FLUD-1001182

PATIENT

DRUGS (11)
  1. THYMOGLOBULIN [Suspect]
     Indication: STEM CELL TRANSPLANT
  2. CYCLOSPORINE [Concomitant]
     Indication: PROPHYLAXIS AGAINST GRAFT VERSUS HOST DISEASE
     Dosage: START ON DAY -1
  3. ACYCLOVIR [Concomitant]
  4. BUSULFAN [Suspect]
     Indication: MYELODYSPLASTIC SYNDROME
     Dosage: UNK,SINGLE DAILY DOSES X2 WITH TARGETED ABSOLUTE NEUTROPHIL COUNT AT 4000 MCMOL X MIN PER DAY
     Route: 065
  5. BUSULFAN [Suspect]
     Indication: STEM CELL TRANSPLANT
  6. FLUDARA [Suspect]
     Indication: MYELODYSPLASTIC SYNDROME
     Dosage: 30 MG/M2, QDX6
     Route: 065
  7. THYMOGLOBULIN [Suspect]
     Indication: MYELODYSPLASTIC SYNDROME
     Dosage: 1 MG/KG, QDX4
     Route: 065
  8. ACYCLOVIR [Concomitant]
     Indication: ANTIVIRAL PROPHYLAXIS
  9. FLUDARA [Suspect]
     Indication: STEM CELL TRANSPLANT
  10. MYCOPHENOLATE MOFETIL [Concomitant]
     Indication: PROPHYLAXIS AGAINST GRAFT VERSUS HOST DISEASE
     Dosage: FOR FIRST 50 DAYS POST TRANSPLANT
  11. FLUCONAZOLE [Concomitant]
     Indication: ANTIFUNGAL PROPHYLAXIS

REACTIONS (1)
  - DISEASE RECURRENCE [None]
